FAERS Safety Report 16344126 (Version 3)
Quarter: 2019Q2

REPORT INFORMATION
  Report Type: Spontaneous
  Country: JP (occurrence: JP)
  Receive Date: 20190522
  Receipt Date: 20190617
  Transmission Date: 20190711
  Serious: Yes (Death, Hospitalization, Disabling)
  Sender: FDA-Public Use
  Company Number: JP-CELGENEUS-JPN-20190507304

PATIENT
  Age: 78 Year
  Sex: Male
  Weight: 70.4 kg

DRUGS (6)
  1. SPIRONOLACTONE. [Concomitant]
     Active Substance: SPIRONOLACTONE
     Indication: OEDEMA PERIPHERAL
     Dosage: 25 MILLIGRAM
     Route: 048
     Dates: start: 20190423, end: 20190427
  2. ABRAXANE [Suspect]
     Active Substance: PACLITAXEL
     Indication: METASTATIC GASTRIC CANCER
     Dosage: 150 MILLIGRAM
     Route: 041
     Dates: start: 20190423, end: 20190423
  3. TS-1 [Suspect]
     Active Substance: GIMERACIL\OTERACIL\TEGAFUR
     Indication: METASTATIC GASTRIC CANCER
     Dosage: 120 MILLIGRAM
     Route: 048
     Dates: start: 20181106, end: 20190415
  4. FUROSEMIDE. [Concomitant]
     Active Substance: FUROSEMIDE
     Indication: OEDEMA PERIPHERAL
     Dosage: 40 MILLIGRAM
     Route: 048
     Dates: start: 20190402, end: 20190422
  5. CYRAMZA [Suspect]
     Active Substance: RAMUCIRUMAB
     Indication: METASTATIC GASTRIC CANCER
     Dosage: 500 MILLIGRAM
     Route: 041
     Dates: start: 20190423, end: 20190423
  6. ELPLAT [Concomitant]
     Active Substance: OXALIPLATIN
     Indication: METASTATIC GASTRIC CANCER
     Dosage: 160 MILLIGRAM
     Route: 041
     Dates: start: 20181106, end: 20190402

REACTIONS (4)
  - Monoplegia [Recovering/Resolving]
  - Multiple organ dysfunction syndrome [Fatal]
  - Altered state of consciousness [Recovering/Resolving]
  - Febrile neutropenia [Fatal]

NARRATIVE: CASE EVENT DATE: 20190428
